FAERS Safety Report 17826445 (Version 1)
Quarter: 2020Q2

REPORT INFORMATION
  Report Type: Spontaneous
  Country: US (occurrence: US)
  Receive Date: 20200526
  Receipt Date: 20200526
  Transmission Date: 20200714
  Serious: Yes (Hospitalization)
  Sender: FDA-Public Use
  Company Number: US-NOVOPROD-729290

PATIENT
  Sex: Male

DRUGS (11)
  1. AMLODIPINE [Concomitant]
     Active Substance: AMLODIPINE BESYLATE
     Indication: PRODUCT USED FOR UNKNOWN INDICATION
     Dosage: UNK
     Route: 048
  2. TRESIBA [Suspect]
     Active Substance: INSULIN DEGLUDEC
     Dosage: UP TO 90 U
     Route: 058
  3. CARDINOL [ATENOLOL] [Concomitant]
     Indication: PRODUCT USED FOR UNKNOWN INDICATION
     Dosage: UNK
     Route: 048
  4. TRESIBA [Suspect]
     Active Substance: INSULIN DEGLUDEC
     Dosage: UP TO 90 U
     Route: 058
  5. TRESIBA [Suspect]
     Active Substance: INSULIN DEGLUDEC
     Dosage: 65 U
     Route: 058
  6. TRESIBA [Suspect]
     Active Substance: INSULIN DEGLUDEC
     Dosage: 65 U
     Route: 058
  7. TRESIBA [Suspect]
     Active Substance: INSULIN DEGLUDEC
     Indication: DIABETES MELLITUS
     Dosage: 60 U
     Route: 058
  8. LISINOPRIL. [Concomitant]
     Active Substance: LISINOPRIL
     Indication: PRODUCT USED FOR UNKNOWN INDICATION
     Dosage: UNK
     Route: 048
  9. METFORMIN [Concomitant]
     Active Substance: METFORMIN HYDROCHLORIDE
     Indication: DIABETES MELLITUS
     Dosage: UNK
     Route: 048
  10. SIMVASTATIN. [Concomitant]
     Active Substance: SIMVASTATIN
     Indication: PRODUCT USED FOR UNKNOWN INDICATION
     Dosage: UNK
     Route: 048
  11. TRESIBA [Suspect]
     Active Substance: INSULIN DEGLUDEC
     Indication: DIABETES MELLITUS
     Dosage: 60 U
     Route: 058

REACTIONS (4)
  - Ingrowing nail [Recovered/Resolved]
  - Poor peripheral circulation [Recovering/Resolving]
  - Hypoaesthesia [Unknown]
  - Skin ulcer [Recovered/Resolved]
